FAERS Safety Report 4448096-5 (Version None)
Quarter: 2004Q3

REPORT INFORMATION
  Report Type: 
  Country: None (occurrence: None)
  Receive Date: 20040913
  Receipt Date: 20040120
  Transmission Date: 20050211
  Serious: Yes (Hospitalization)
  Sender: FDA-Public Use
  Company Number: 12480703

PATIENT
  Age: 64 Year
  Sex: Male

DRUGS (3)
  1. BLEOMYCIN [Suspect]
     Indication: SEMINOMA
     Route: 042
     Dates: start: 20020924
  2. LASTET [Suspect]
     Indication: SEMINOMA
     Dosage: DOSAGE FORM = 100MG/M2
     Route: 042
     Dates: start: 20020924
  3. RANDA [Suspect]
     Indication: SEMINOMA
     Route: 042
     Dates: start: 20020924

REACTIONS (4)
  - ALOPECIA [None]
  - ANOREXIA [None]
  - BONE MARROW DEPRESSION [None]
  - WEIGHT DECREASED [None]
